FAERS Safety Report 13612089 (Version 2)
Quarter: 2017Q2

REPORT INFORMATION
  Report Type: Report from Study
  Country: CA (occurrence: CA)
  Receive Date: 20170605
  Receipt Date: 20170625
  Transmission Date: 20170830
  Serious: Yes (Hospitalization, Other)
  Sender: FDA-Public Use
  Company Number: CA-AMGEN-CANSL2017085091

PATIENT
  Age: 31 Year
  Sex: Male

DRUGS (1)
  1. ENBREL [Suspect]
     Active Substance: ETANERCEPT
     Indication: PSORIATIC ARTHROPATHY
     Dosage: 50 MG, UNK
     Route: 065
     Dates: start: 20080520

REACTIONS (2)
  - Spinal fracture [Not Recovered/Not Resolved]
  - Urinary tract infection [Unknown]
